FAERS Safety Report 6389383-3 (Version None)
Quarter: 2009Q4

REPORT INFORMATION
  Report Type: 
  Country: None (occurrence: None)
  Receive Date: 20091006
  Receipt Date: 20090922
  Transmission Date: 20100525
  Serious: Yes (Hospitalization, Other)
  Sender: FDA-Public Use
  Company Number: GB-ELI_LILLY_AND_COMPANY-GB200906005625

PATIENT
  Sex: Female
  Weight: 42.5 kg

DRUGS (4)
  1. FORTEO [Suspect]
     Indication: OSTEOPOROSIS
     Dosage: 20 UG, DAILY (1/D)
     Route: 058
     Dates: start: 20080401, end: 20090601
  2. PREDNISOLONE [Concomitant]
     Indication: COLITIS
     Dosage: 7 MG, UNKNOWN
     Route: 048
     Dates: start: 20050101
  3. WARFARIN [Concomitant]
     Indication: EMBOLISM
     Dosage: UNK, UNKNOWN
     Route: 048
     Dates: start: 20040101
  4. RISEDRONATE SODIUM [Concomitant]
     Indication: OSTEOPOROSIS
     Dosage: 35 MG, UNKNOWN
     Route: 048
     Dates: start: 20090101

REACTIONS (1)
  - ATRIAL FIBRILLATION [None]
